FAERS Safety Report 4459759-X (Version None)
Quarter: 2004Q3

REPORT INFORMATION
  Report Type: 
  Country: None (occurrence: None)
  Receive Date: 20040928
  Receipt Date: 20040112
  Transmission Date: 20050211
  Serious: Yes (Other)
  Sender: FDA-Public Use
  Company Number: US-BRISTOL-MYERS SQUIBB COMPANY-12476909

PATIENT
  Age: 4 Decade
  Sex: Female

DRUGS (3)
  1. KENALOG-40 [Suspect]
     Indication: NERVE INJURY
     Dosage: THERAPY DATE: 2.5 YEARS AGO ROUTE: INJECTION
  2. LIDOCAINE [Suspect]
     Dosage: THERAPY DATE: 2.5 YEARS AGO ROUTE: INJECTION
  3. GABAPENTIN [Concomitant]

REACTIONS (2)
  - ATROPHY [None]
  - PAIN [None]
